FAERS Safety Report 6263705-6 (Version None)
Quarter: 2009Q3

REPORT INFORMATION
  Report Type: 
  Country: None (occurrence: None)
  Receive Date: 20090707
  Receipt Date: 20090707
  Transmission Date: 20100115
  Serious: No
  Sender: FDA-Public Use
  Company Number: None

PATIENT
  Age: 51 Year
  Sex: Female
  Weight: 65.7716 kg

DRUGS (2)
  1. ZICAM NASAL SPRAY [Suspect]
     Indication: NASAL CONGESTION
     Dosage: TWICE DAILY OR AS NEEDED TWICE DAILY NASAL
     Route: 045
     Dates: start: 19981010, end: 20081013
  2. GEODONE [Concomitant]

REACTIONS (5)
  - BURNING SENSATION [None]
  - DYSGEUSIA [None]
  - PAIN [None]
  - PAROSMIA [None]
  - SINUSITIS [None]
